FAERS Safety Report 6963737-6 (Version None)
Quarter: 2010Q3

REPORT INFORMATION
  Report Type: 
  Country: None (occurrence: None)
  Receive Date: 20100902
  Receipt Date: 20100823
  Transmission Date: 20110219
  Serious: No
  Sender: FDA-Public Use
  Company Number: US-B.I. PHARMACEUTICALS,INC./RIDGEFIELD-2010-BP-09545BP

PATIENT
  Age: 66 Year
  Sex: Male

DRUGS (2)
  1. CATAPRES-TTS-1 [Suspect]
     Indication: HYPERTENSION
     Dosage: 0.1 MG
     Route: 061
     Dates: start: 20070101
  2. BENICAR [Concomitant]

REACTIONS (4)
  - DRY MOUTH [None]
  - LACERATION [None]
  - NOCTURIA [None]
  - SOMNOLENCE [None]
